FAERS Safety Report 24336620 (Version 1)
Quarter: 2024Q3

REPORT INFORMATION
  Report Type: Spontaneous
  Country: JP (occurrence: JP)
  Receive Date: 20240919
  Receipt Date: 20240919
  Transmission Date: 20241016
  Serious: No
  Sender: ROCHE
  Company Number: JP-CHUGAI-2023046612

PATIENT
  Age: 36 Year
  Sex: Male

DRUGS (10)
  1. TAMIFLU [Suspect]
     Active Substance: OSELTAMIVIR PHOSPHATE
     Indication: Antiviral prophylaxis
     Route: 065
     Dates: start: 20231129, end: 20231204
  2. TAMIFLU [Suspect]
     Active Substance: OSELTAMIVIR PHOSPHATE
     Indication: Influenza
     Route: 065
     Dates: start: 20231207
  3. VALPROATE SODIUM [Concomitant]
     Active Substance: VALPROATE SODIUM
     Dates: start: 20230327
  4. MIYA-BM [Concomitant]
     Active Substance: CLOSTRIDIUM BUTYRICUM SPORES STRAIN M-55
     Dates: start: 20230327
  5. ROZEREM [Concomitant]
     Active Substance: RAMELTEON
     Dates: start: 20230327
  6. SEROQUEL [Concomitant]
     Active Substance: QUETIAPINE FUMARATE
     Dates: start: 20230327
  7. BELSOMRA [Concomitant]
     Active Substance: SUVOREXANT
     Dates: start: 20230327
  8. NADIFLOXACIN [Concomitant]
     Active Substance: NADIFLOXACIN
     Dosage: OCCIPITAL REGION
     Dates: start: 20231129
  9. HERBALS [Concomitant]
     Active Substance: HERBALS
     Dates: start: 20231130
  10. MOVICOL [Concomitant]
     Active Substance: POLYETHYLENE GLYCOL 3350\POTASSIUM CHLORIDE\SODIUM BICARBONATE\SODIUM CHLORIDE
     Dates: start: 20231130

REACTIONS (1)
  - Influenza [Unknown]

NARRATIVE: CASE EVENT DATE: 20231201
